FAERS Safety Report 8270979-9 (Version None)
Quarter: 2012Q2

REPORT INFORMATION
  Report Type: 
  Country: None (occurrence: None)
  Receive Date: 20120410
  Receipt Date: 20120403
  Transmission Date: 20120825
  Serious: Yes (Death, Hospitalization, Other)
  Sender: FDA-Public Use
  Company Number: US-ELI_LILLY_AND_COMPANY-US201204000989

PATIENT
  Sex: Female
  Weight: 102.49 kg

DRUGS (18)
  1. FLUOXETINE [Concomitant]
     Dosage: 40 MG, UNK
     Dates: start: 20110629, end: 20110710
  2. FENTANYL CITRATE [Concomitant]
     Dosage: UNK
     Dates: start: 20110719, end: 20110720
  3. METOPROLOL TARTRATE [Concomitant]
     Dosage: UNK
     Dates: start: 20110624, end: 20110628
  4. VENLAFAXINE [Concomitant]
     Dosage: 37.5 MG, QD
  5. HYDROCORTISONE [Concomitant]
     Dosage: UNK
     Dates: start: 20110701, end: 20110709
  6. ZOLPIDEM [Concomitant]
     Dosage: UNK
     Dates: start: 20110713, end: 20110715
  7. MORPHINE [Concomitant]
     Dosage: UNK, PRN
     Dates: start: 20110628, end: 20110718
  8. AMIODARONE HCL [Concomitant]
     Dosage: UNK
     Dates: start: 20110630, end: 20110721
  9. DIAZEPAM [Concomitant]
     Dosage: UNK
     Dates: start: 20110706, end: 20110708
  10. DIPHENHYDRAMINE HCL [Concomitant]
     Dosage: UNK
     Dates: start: 20110718, end: 20110721
  11. SIMVASTATIN [Concomitant]
     Dosage: UNK
     Dates: start: 20110624, end: 20110720
  12. BUPROPION HCL [Interacting]
     Indication: DEPRESSION
     Dosage: 150 MG, TID
     Route: 048
     Dates: end: 20110721
  13. VENLAFAXINE [Concomitant]
     Indication: DEPRESSION
     Dosage: 150 MG, QD
  14. METOPROLOL TARTRATE [Concomitant]
     Dosage: UNK
     Dates: start: 20110709, end: 20110718
  15. MIDAZOLAM [Concomitant]
     Dosage: UNK, PRN
  16. CYMBALTA [Interacting]
     Dosage: 60 MG, QD
     Route: 065
     Dates: start: 20110713, end: 20110720
  17. CYMBALTA [Suspect]
     Indication: DEPRESSION
     Dosage: 60 MG, QD
     Route: 048
  18. CYMBALTA [Interacting]
     Dosage: 60 MG, QD
     Route: 065
     Dates: start: 20110624, end: 20110627

REACTIONS (6)
  - SEROTONIN SYNDROME [None]
  - CORONARY ARTERY DISEASE [None]
  - LEUKOCYTOSIS [None]
  - DRUG INTERACTION [None]
  - CARDIOGENIC SHOCK [None]
  - PNEUMONIA [None]
